FAERS Safety Report 5463033-2 (Version None)
Quarter: 2007Q3

REPORT INFORMATION
  Report Type: 
  Country: None (occurrence: None)
  Receive Date: 20070920
  Receipt Date: 20070911
  Transmission Date: 20080115
  Serious: Yes (Other)
  Sender: FDA-Public Use
  Company Number: US-JNJFOC-20070603668

PATIENT
  Sex: Male
  Weight: 98.43 kg

DRUGS (4)
  1. REMICADE [Suspect]
     Dosage: THE DOSE WAS INCREASED AND THE INFUSION FREQUENCY DECREASED.
     Route: 042
  2. REMICADE [Suspect]
     Dosage: THE DOSE WAS INCREASED AND THE INFUSION FREQUENCY DECREASED.
     Route: 042
  3. REMICADE [Suspect]
     Dosage: THE DOSE WAS INCREASED AND THE INFUSION FREQUENCY DECREASED.
     Route: 042
  4. REMICADE [Suspect]
     Indication: CROHN'S DISEASE
     Dosage: THE DOSE WAS INCREASED AND THE INFUSION FREQUENCY DECREASED.
     Route: 042

REACTIONS (8)
  - ABDOMINAL PAIN LOWER [None]
  - ANXIETY [None]
  - ARTHRALGIA [None]
  - BOWEL MOVEMENT IRREGULARITY [None]
  - DEREALISATION [None]
  - DRUG INEFFECTIVE [None]
  - OCULAR ICTERUS [None]
  - VISUAL DISTURBANCE [None]
